FAERS Safety Report 26064121 (Version 1)
Quarter: 2025Q4

REPORT INFORMATION
  Report Type: Spontaneous
  Country: EU (occurrence: EU)
  Receive Date: 20251119
  Receipt Date: 20251119
  Transmission Date: 20260118
  Serious: Yes (Life-Threatening)
  Sender: MYLAN
  Company Number: EU-MYLANLABS-2025M1098187

PATIENT
  Age: 57 Year
  Sex: Male

DRUGS (16)
  1. PREGABALIN [Suspect]
     Active Substance: PREGABALIN
     Indication: Pain
     Dosage: UNK
  2. PREGABALIN [Suspect]
     Active Substance: PREGABALIN
     Indication: Neuralgia
     Dosage: UNK
     Route: 065
  3. PREGABALIN [Suspect]
     Active Substance: PREGABALIN
     Dosage: UNK
     Route: 065
  4. PREGABALIN [Suspect]
     Active Substance: PREGABALIN
     Dosage: UNK
  5. ROPIVACAINE [Suspect]
     Active Substance: ROPIVACAINE
     Indication: Anaesthesia
     Dosage: UNK, ROPIVACAINE 10% WAS ADMINISTERED VIA A 40 ML PUMP
  6. ROPIVACAINE [Suspect]
     Active Substance: ROPIVACAINE
     Dosage: UNK, ROPIVACAINE 10% WAS ADMINISTERED VIA A 40 ML PUMP
     Route: 037
  7. ROPIVACAINE [Suspect]
     Active Substance: ROPIVACAINE
     Dosage: UNK, ROPIVACAINE 10% WAS ADMINISTERED VIA A 40 ML PUMP
     Route: 037
  8. ROPIVACAINE [Suspect]
     Active Substance: ROPIVACAINE
     Dosage: UNK, ROPIVACAINE 10% WAS ADMINISTERED VIA A 40 ML PUMP
  9. ROPIVACAINE [Suspect]
     Active Substance: ROPIVACAINE
     Indication: Anaesthesia
     Dosage: 2 MILLILITER, ROPIVACAINE 7.5% AT A DOSE OF 2 ML
  10. ROPIVACAINE [Suspect]
     Active Substance: ROPIVACAINE
     Dosage: 2 MILLILITER, ROPIVACAINE 7.5% AT A DOSE OF 2 ML
     Route: 037
  11. ROPIVACAINE [Suspect]
     Active Substance: ROPIVACAINE
     Dosage: 2 MILLILITER, ROPIVACAINE 7.5% AT A DOSE OF 2 ML
     Route: 037
  12. ROPIVACAINE [Suspect]
     Active Substance: ROPIVACAINE
     Dosage: 2 MILLILITER, ROPIVACAINE 7.5% AT A DOSE OF 2 ML
  13. MORPHINE [Suspect]
     Active Substance: MORPHINE
     Indication: Pain
     Dosage: UNK
  14. MORPHINE [Suspect]
     Active Substance: MORPHINE
     Indication: Neuralgia
     Dosage: UNK
     Route: 037
  15. MORPHINE [Suspect]
     Active Substance: MORPHINE
     Dosage: UNK
     Route: 037
  16. MORPHINE [Suspect]
     Active Substance: MORPHINE
     Dosage: UNK

REACTIONS (6)
  - Circulatory collapse [Unknown]
  - Product administration error [Unknown]
  - Device dislocation [Unknown]
  - Drug intolerance [Unknown]
  - Dizziness [Unknown]
  - Disorientation [Unknown]
